FAERS Safety Report 17316846 (Version 2)
Quarter: 2020Q1

REPORT INFORMATION
  Report Type: Spontaneous
  Country: US (occurrence: US)
  Receive Date: 20200124
  Receipt Date: 20200304
  Transmission Date: 20200409
  Serious: Yes (Other)
  Sender: FDA-Public Use
  Company Number: US-BAYER-2020-013414

PATIENT
  Age: 45 Year
  Sex: Female
  Weight: 57.15 kg

DRUGS (2)
  1. MIRENA [Suspect]
     Active Substance: LEVONORGESTREL
     Indication: CONTRACEPTION
     Dosage: 20 MCG/24HR, CONT
     Route: 015
     Dates: start: 201606
  2. MIRENA [Suspect]
     Active Substance: LEVONORGESTREL
     Indication: MENORRHAGIA

REACTIONS (4)
  - Genital haemorrhage [None]
  - Amenorrhoea [Recovered/Resolved]
  - Ovarian cyst [None]
  - Uterine leiomyoma [None]

NARRATIVE: CASE EVENT DATE: 2016
